FAERS Safety Report 5880549-5 (Version None)
Quarter: 2008Q3

REPORT INFORMATION
  Report Type: 
  Country: None (occurrence: None)
  Receive Date: 20080912
  Receipt Date: 20080602
  Transmission Date: 20090109
  Serious: No
  Sender: FDA-Public Use
  Company Number: US-ABBOTT-08P-163-0454565-00

PATIENT
  Sex: Female

DRUGS (4)
  1. HUMIRA [Suspect]
     Indication: CROHN'S DISEASE
     Dosage: ALTERNATES BETWEEN SYRINGE AND PEN
     Route: 058
     Dates: start: 20070601
  2. HUMIRA [Suspect]
     Indication: CROHN'S DISEASE
     Dosage: ALTERNATES BETWEEN SYRINGE AND PEN
     Route: 058
     Dates: start: 20070601
  3. GABAPENTIN [Concomitant]
     Indication: DRUG USE FOR UNKNOWN INDICATION
  4. AMLODIPINE BESYLATE [Concomitant]
     Indication: BLOOD PRESSURE

REACTIONS (6)
  - HEADACHE [None]
  - INJECTION SITE ERYTHEMA [None]
  - INJECTION SITE INDURATION [None]
  - INJECTION SITE REACTION [None]
  - INJECTION SITE WARMTH [None]
  - RASH [None]
